FAERS Safety Report 7932168-4 (Version None)
Quarter: 2011Q4

REPORT INFORMATION
  Report Type: 
  Country: None (occurrence: None)
  Receive Date: 20111121
  Receipt Date: 20111110
  Transmission Date: 20120403
  Serious: Yes (Hospitalization)
  Sender: FDA-Public Use
  Company Number: US-ASTRAZENECA-2011SE68653

PATIENT
  Age: 59 Year
  Sex: Male
  Weight: 108.9 kg

DRUGS (6)
  1. URISSETTE K [Concomitant]
     Indication: NEPHROLITHIASIS
     Dosage: THREE TIMES A DAY
  2. ZOMIG [Concomitant]
     Indication: HEADACHE
  3. FLEXERIL [Concomitant]
     Indication: BACK PAIN
     Dosage: PRN
  4. NEXIUM [Suspect]
     Route: 048
  5. DEMEROL [Concomitant]
  6. REQUIP [Concomitant]
     Indication: RESTLESS LEGS SYNDROME

REACTIONS (6)
  - FUNCTIONAL GASTROINTESTINAL DISORDER [None]
  - DIVERTICULITIS [None]
  - VOMITING [None]
  - DRUG DOSE OMISSION [None]
  - GASTROOESOPHAGEAL REFLUX DISEASE [None]
  - CHOKING [None]
